FAERS Safety Report 18562192 (Version 2)
Quarter: 2021Q2

REPORT INFORMATION
  Report Type: Spontaneous
  Country: US (occurrence: US)
  Receive Date: 20201201
  Receipt Date: 20210502
  Transmission Date: 20210717
  Serious: No
  Sender: FDA-Public Use
  Company Number: US-SA-2020SA338375

PATIENT
  Age: 8 Year
  Sex: Male

DRUGS (1)
  1. DUPIXENT [Suspect]
     Active Substance: DUPILUMAB
     Indication: DERMATITIS ATOPIC
     Dosage: 300 MG, Q4W
     Route: 058
     Dates: start: 20201021

REACTIONS (3)
  - Adverse drug reaction [Unknown]
  - Arthralgia [Unknown]
  - Product use issue [Unknown]

NARRATIVE: CASE EVENT DATE: 20201021
